FAERS Safety Report 23245255 (Version 4)
Quarter: 2023Q4

REPORT INFORMATION
  Report Type: Spontaneous
  Country: CN (occurrence: CN)
  Receive Date: 20231130
  Receipt Date: 20231229
  Transmission Date: 20240110
  Serious: Yes (Hospitalization)
  Sender: FDA-Public Use
  Company Number: CN-Merck Healthcare KGaA-2023489893

PATIENT
  Age: 37 Year
  Sex: Female

DRUGS (2)
  1. GONAL-F [Suspect]
     Active Substance: FOLLITROPIN
     Indication: Ovulation induction
     Dates: start: 202111
  2. LUVERIS [Suspect]
     Active Substance: LUTROPIN ALFA
     Indication: Product used for unknown indication

REACTIONS (5)
  - Appendicitis [Unknown]
  - Retching [Unknown]
  - Abdominal pain [Unknown]
  - Vomiting [Unknown]
  - Ovarian hyperstimulation syndrome [Unknown]
